APPROVED DRUG PRODUCT: RIBAVIRIN
Active Ingredient: RIBAVIRIN
Strength: 200MG
Dosage Form/Route: TABLET;ORAL
Application: A077743 | Product #001 | TE Code: AB
Applicant: SANDOZ INC
Approved: Oct 3, 2006 | RLD: No | RS: No | Type: RX